FAERS Safety Report 16310249 (Version 4)
Quarter: 2019Q4

REPORT INFORMATION
  Report Type: Spontaneous
  Country: US (occurrence: US)
  Receive Date: 20190514
  Receipt Date: 20191101
  Transmission Date: 20200122
  Serious: Yes (Other)
  Sender: FDA-Public Use
  Company Number: US-ASTRAZENECA-2019SE10004

PATIENT
  Age: 24425 Day
  Sex: Female
  Weight: 82.1 kg

DRUGS (22)
  1. PREDNISONE. [Concomitant]
     Active Substance: PREDNISONE
  2. PANTOPRAZOLE [Suspect]
     Active Substance: PANTOPRAZOLE
     Indication: GASTROOESOPHAGEAL REFLUX DISEASE
     Route: 065
     Dates: start: 2014
  3. TEMAZEPAM. [Concomitant]
     Active Substance: TEMAZEPAM
  4. AMPICILLIN [Concomitant]
     Active Substance: AMPICILLIN
  5. TRAMADOL. [Concomitant]
     Active Substance: TRAMADOL
  6. MECLIZINE [Concomitant]
     Active Substance: MECLIZINE HYDROCHLORIDE
  7. WARFARIN [Concomitant]
     Active Substance: WARFARIN
  8. BENZONATATE. [Concomitant]
     Active Substance: BENZONATATE
  9. LISINOPRIL. [Concomitant]
     Active Substance: LISINOPRIL
  10. TORSEMIDE. [Concomitant]
     Active Substance: TORSEMIDE
  11. NAPROXEN. [Concomitant]
     Active Substance: NAPROXEN
  12. PRILOSEC OTC [Suspect]
     Active Substance: OMEPRAZOLE MAGNESIUM
     Route: 048
  13. AZITHROMYCIN ANHYDROUS. [Concomitant]
     Active Substance: AZITHROMYCIN ANHYDROUS
  14. OMEPRAZOLE. [Suspect]
     Active Substance: OMEPRAZOLE
     Indication: GASTROOESOPHAGEAL REFLUX DISEASE
     Route: 065
     Dates: start: 2014
  15. ALLOPURINOL. [Concomitant]
     Active Substance: ALLOPURINOL
  16. METOPROLOL. [Concomitant]
     Active Substance: METOPROLOL
  17. GABAPENTIN. [Concomitant]
     Active Substance: GABAPENTIN
  18. FUROSEMIDE. [Concomitant]
     Active Substance: FUROSEMIDE
  19. DIGOXIN. [Concomitant]
     Active Substance: DIGOXIN
  20. CIPRO [Concomitant]
     Active Substance: CIPROFLOXACIN HYDROCHLORIDE
  21. MUPIROCIN. [Concomitant]
     Active Substance: MUPIROCIN
  22. CARVEDILOL. [Concomitant]
     Active Substance: CARVEDILOL

REACTIONS (6)
  - Hyperparathyroidism secondary [Unknown]
  - Acute kidney injury [Unknown]
  - Rebound acid hypersecretion [Unknown]
  - Chronic kidney disease [Not Recovered/Not Resolved]
  - Renal failure [Unknown]
  - Renal injury [Unknown]

NARRATIVE: CASE EVENT DATE: 20160720
